FAERS Safety Report 19704311 (Version 1)
Quarter: 2021Q3

REPORT INFORMATION
  Report Type: Spontaneous
  Country: US (occurrence: US)
  Receive Date: 20210815
  Receipt Date: 20210815
  Transmission Date: 20211014
  Serious: Yes (Disabling)
  Sender: FDA-Public Use
  Company Number: None

PATIENT
  Age: 59 Year
  Sex: Female
  Weight: 91.35 kg

DRUGS (10)
  1. CLONADINE [Concomitant]
  2. CETIRIZINE [Concomitant]
     Active Substance: CETIRIZINE HYDROCHLORIDE
  3. ALBUTERAOL [Concomitant]
  4. DULERA [Concomitant]
     Active Substance: FORMOTEROL FUMARATE DIHYDRATE\MOMETASONE FUROATE
  5. MONTALUKAST [Concomitant]
  6. FAMOTADINE [Concomitant]
  7. PRAMIPEXOLE. [Concomitant]
     Active Substance: PRAMIPEXOLE
  8. NUVIGIL [Concomitant]
     Active Substance: ARMODAFINIL
  9. JUNTILI [Concomitant]
  10. LIDOCAINE HCL 2%, EPINEPHRINE 1:100,000 INJECTION, 1.7ML [Suspect]
     Active Substance: EPINEPHRINE\LIDOCAINE HYDROCHLORIDE
     Indication: DENTAL CARE
     Dosage: ?          OTHER ROUTE:INJECTED BY MY DENTIST, LOWER JAW?
     Dates: start: 20210806, end: 20210806

REACTIONS (10)
  - Documented hypersensitivity to administered product [None]
  - Urticaria [None]
  - Angioedema [None]
  - Insomnia [None]
  - Allergic reaction to excipient [None]
  - Fatigue [None]
  - Ear infection [None]
  - Malaise [None]
  - Hypersomnia [None]
  - Impaired work ability [None]

NARRATIVE: CASE EVENT DATE: 20210806
